FAERS Safety Report 12921661 (Version 2)
Quarter: 2016Q4

REPORT INFORMATION
  Report Type: Spontaneous
  Country: US (occurrence: US)
  Receive Date: 20161108
  Receipt Date: 20161123
  Transmission Date: 20170207
  Serious: Yes (Death, Hospitalization)
  Sender: FDA-Public Use
  Company Number: US-BAYER-2016-208343

PATIENT
  Age: 66 Year
  Sex: Male

DRUGS (1)
  1. GADAVIST [Suspect]
     Active Substance: GADOBUTROL
     Indication: NUCLEAR MAGNETIC RESONANCE IMAGING SPINAL
     Dosage: 7.5 ML, ONCE
     Dates: start: 20161026, end: 20161026

REACTIONS (5)
  - Paraesthesia [None]
  - Myocardial infarction [None]
  - Binocular eye movement disorder [None]
  - Death [Fatal]
  - Piloerection [None]

NARRATIVE: CASE EVENT DATE: 20161026
